FAERS Safety Report 17251312 (Version 1)
Quarter: 2020Q1

REPORT INFORMATION
  Report Type: Spontaneous
  Country: US (occurrence: US)
  Receive Date: 20200109
  Receipt Date: 20200109
  Transmission Date: 20200409
  Serious: Yes (Other)
  Sender: FDA-Public Use
  Company Number: US-HIKMA PHARMACEUTICALS USA INC.-US-H14001-20-00016

PATIENT
  Age: 75 Year
  Sex: Female

DRUGS (5)
  1. ZIPRASIDONE. [Concomitant]
     Active Substance: ZIPRASIDONE
     Indication: AGGRESSION
     Route: 030
  2. LORAZEPAM. [Suspect]
     Active Substance: LORAZEPAM
     Indication: ABNORMAL BEHAVIOUR
     Route: 030
  3. TRAZODONE [Suspect]
     Active Substance: TRAZODONE HYDROCHLORIDE
     Indication: PRODUCT USED FOR UNKNOWN INDICATION
     Route: 065
  4. DONEPEZIL. [Suspect]
     Active Substance: DONEPEZIL
     Indication: PRODUCT USED FOR UNKNOWN INDICATION
     Route: 065
  5. TEMAZEPAM. [Suspect]
     Active Substance: TEMAZEPAM
     Indication: PRODUCT USED FOR UNKNOWN INDICATION
     Route: 065

REACTIONS (1)
  - Acute kidney injury [Unknown]
